FAERS Safety Report 7056924-2 (Version None)
Quarter: 2010Q4

REPORT INFORMATION
  Report Type: 
  Country: None (occurrence: None)
  Receive Date: 20101022
  Receipt Date: 20101012
  Transmission Date: 20110411
  Serious: Yes (Other)
  Sender: FDA-Public Use
  Company Number: US-JNJFOC-20101003447

PATIENT
  Age: 67 Year
  Sex: Female

DRUGS (5)
  1. REMICADE [Suspect]
     Indication: RHEUMATOID ARTHRITIS
     Route: 042
  2. REMICADE [Suspect]
     Route: 042
  3. MTX [Concomitant]
     Indication: RHEUMATOID ARTHRITIS
  4. MULTI-VITAMINS [Concomitant]
  5. OXYCONTIN [Concomitant]
     Indication: PAIN

REACTIONS (3)
  - EPISTAXIS [None]
  - INCORRECT DRUG ADMINISTRATION RATE [None]
  - LIMB OPERATION [None]
